FAERS Safety Report 10376569 (Version 2)
Quarter: 2014Q3

REPORT INFORMATION
  Report Type: Report from Study
  Country: VE (occurrence: VE)
  Receive Date: 20140811
  Receipt Date: 20140815
  Transmission Date: 20150326
  Serious: Yes (Death)
  Sender: FDA-Public Use
  Company Number: VE-ABBVIE-14K-178-1270455-00

PATIENT
  Age: 62 Year
  Sex: Female

DRUGS (1)
  1. HUMIRA [Suspect]
     Active Substance: ADALIMUMAB
     Indication: RHEUMATOID ARTHRITIS
     Route: 058
     Dates: start: 20120907, end: 201404

REACTIONS (5)
  - Pneumothorax [Fatal]
  - Renal impairment [Fatal]
  - Haemorrhage [Fatal]
  - Rheumatoid arthritis [Fatal]
  - Back disorder [Fatal]

NARRATIVE: CASE EVENT DATE: 201404
